FAERS Safety Report 23347070 (Version 1)
Quarter: 2023Q4

REPORT INFORMATION
  Report Type: Spontaneous
  Country: US (occurrence: None)
  Receive Date: 20231228
  Receipt Date: 20231228
  Transmission Date: 20240110
  Serious: Yes (Hospitalization)
  Sender: FDA-Public Use
  Company Number: None

PATIENT
  Age: 63 Year
  Sex: Male
  Weight: 101 kg

DRUGS (3)
  1. BELANTAMAB MAFODOTIN [Suspect]
     Active Substance: BELANTAMAB MAFODOTIN
     Indication: Plasma cell myeloma
     Dosage: 195.5 MG EVERY 8 WEEKS INTRAVENOUS DRIP
     Route: 041
     Dates: start: 20230919
  2. POMALIDOMIDE [Concomitant]
     Active Substance: POMALIDOMIDE
     Dates: start: 20230919
  3. Dexamethasoone [Concomitant]
     Dates: start: 20230919

REACTIONS (2)
  - Pulmonary embolism [None]
  - Cor pulmonale acute [None]

NARRATIVE: CASE EVENT DATE: 20231210
